FAERS Safety Report 14479990 (Version 5)
Quarter: 2018Q2

REPORT INFORMATION
  Report Type: Report from Study
  Country: US (occurrence: US)
  Receive Date: 20180202
  Receipt Date: 20180516
  Transmission Date: 20180711
  Serious: Yes (Hospitalization)
  Sender: FDA-Public Use
  Company Number: US-PFIZER INC-2017542306

PATIENT
  Age: 57 Year
  Sex: Female

DRUGS (3)
  1. FASLODEX [Suspect]
     Active Substance: FULVESTRANT
     Dosage: UNK
     Dates: start: 20171201
  2. IBRANCE [Suspect]
     Active Substance: PALBOCICLIB
     Dosage: 100 MG, CYCLIC (DAILY 21 DAYS ON AND 7 DAYS OFF)
     Route: 048
     Dates: start: 20180205
  3. IBRANCE [Suspect]
     Active Substance: PALBOCICLIB
     Indication: BREAST CANCER
     Dosage: 125 MG, CYCLIC (DAILY 21 DAYS ON AND 7 DAYS OFF)
     Route: 048
     Dates: start: 20171216, end: 201801

REACTIONS (13)
  - Dysgeusia [Unknown]
  - Chest pain [Unknown]
  - Oxygen saturation decreased [Recovered/Resolved]
  - Stomatitis [Unknown]
  - Poor quality sleep [Unknown]
  - Weight increased [Unknown]
  - Dyspnoea [Recovered/Resolved]
  - Ageusia [Unknown]
  - Epistaxis [Unknown]
  - White blood cell count decreased [Not Recovered/Not Resolved]
  - Hypertension [Unknown]
  - Drug administration error [Unknown]
  - Rash [Unknown]

NARRATIVE: CASE EVENT DATE: 201712
